FAERS Safety Report 6183917-X (Version None)
Quarter: 2009Q2

REPORT INFORMATION
  Report Type: 
  Country: None (occurrence: None)
  Receive Date: 20090508
  Receipt Date: 20090429
  Transmission Date: 20091009
  Serious: Yes (Other)
  Sender: FDA-Public Use
  Company Number: US-AMGEN-QUU345015

PATIENT
  Sex: Female

DRUGS (3)
  1. ENBREL [Suspect]
     Indication: RHEUMATOID ARTHRITIS
     Route: 058
     Dates: start: 19981201
  2. ENBREL [Suspect]
     Indication: OSTEOARTHRITIS
  3. IMURAN [Concomitant]
     Route: 048

REACTIONS (2)
  - BREAST MASS [None]
  - LYMPHADENECTOMY [None]
